FAERS Safety Report 24714904 (Version 1)
Quarter: 2024Q4

REPORT INFORMATION
  Report Type: Spontaneous
  Country: JP (occurrence: JP)
  Receive Date: 20241210
  Receipt Date: 20241210
  Transmission Date: 20250114
  Serious: Yes (Hospitalization)
  Sender: GENMAB
  Company Number: JP-GENMAB-2024-03760

PATIENT
  Age: 8 Decade
  Sex: Male

DRUGS (8)
  1. EPKINLY [Suspect]
     Active Substance: EPCORITAMAB-BYSP
     Indication: Diffuse large B-cell lymphoma refractory
     Dosage: 0.16 MILLIGRAM, SINGLE,  THE FIRST DOSE IN CYCLE 1
     Route: 058
     Dates: start: 2024, end: 2024
  2. EPKINLY [Suspect]
     Active Substance: EPCORITAMAB-BYSP
     Dosage: 0.8 MILLIGRAM, SINGLE, THE SECOND DOSE IN CYCLE 1
     Route: 058
     Dates: start: 2024, end: 2024
  3. EPKINLY [Suspect]
     Active Substance: EPCORITAMAB-BYSP
     Dosage: 48 MILLIGRAM, FROM THE THIRD DOSE IN CYCLE 1
     Route: 058
     Dates: start: 2024
  4. DEXAMETHASONE [Concomitant]
     Active Substance: DEXAMETHASONE
     Indication: Premedication
     Dosage: 8 MILLIGRAM, FROM THE FIRST TO FOURTH DOSE IN CYCLE 1, ON DAY1, DAY 2, DAY 3 AND DAY 4 OF ADMINISTRA
     Dates: start: 2024, end: 2024
  5. DEXAMETHASONE [Concomitant]
     Active Substance: DEXAMETHASONE
     Dosage: 8 MILLIGRAM, THE FIRST TO SECOND DOSE IN CYCLE 2, ON DAY1 OF ADMINISTRATION OF EPKINLY.
     Dates: start: 2024, end: 2024
  6. PREDNISOLONE [Concomitant]
     Active Substance: PREDNISOLONE
     Indication: Premedication
     Dosage: 15 MILLIGRAM, THE SECOND DOSE IN CYCLE 2, ON DAY2 OF OF ADMINISTRATION OF EPKINLY.
     Dates: start: 2024, end: 2024
  7. PREDNISOLONE [Concomitant]
     Active Substance: PREDNISOLONE
     Dosage: 10 MILLIGRAM, THE SECOND DOSE IN CYCLE 2, ON DAY3, DAY 4 OF OF ADMINISTRATION OF EPKINLY.
     Dates: start: 2024, end: 2024
  8. PREDNISOLONE [Concomitant]
     Active Substance: PREDNISOLONE
     Dosage: 5 MILLIGRAM, THE SECOND DOSE IN CYCLE 2, ON DAY 5 OF OF ADMINISTRATION OF EPKINLY.
     Dates: start: 2024, end: 2024

REACTIONS (2)
  - Malaise [Recovering/Resolving]
  - C-reactive protein increased [Recovering/Resolving]

NARRATIVE: CASE EVENT DATE: 20240101
